FAERS Safety Report 11844324 (Version 1)
Quarter: 2015Q4

REPORT INFORMATION
  Report Type: Spontaneous
  Country: US (occurrence: None)
  Receive Date: 20151216
  Receipt Date: 20151216
  Transmission Date: 20160305
  Serious: Yes (Hospitalization)
  Sender: FDA-Public Use
  Company Number: None

PATIENT
  Age: 65 Year
  Sex: Female

DRUGS (1)
  1. NEXAVAR [Suspect]
     Active Substance: SORAFENIB
     Route: 048
     Dates: start: 20151112

REACTIONS (3)
  - Skin ulcer [None]
  - Pain [None]
  - Anaemia [None]

NARRATIVE: CASE EVENT DATE: 20151112
